FAERS Safety Report 16175395 (Version 2)
Quarter: 2022Q1

REPORT INFORMATION
  Report Type: Spontaneous
  Country: US (occurrence: US)
  Receive Date: 20190409
  Receipt Date: 20220310
  Transmission Date: 20220423
  Serious: No
  Sender: FDA-Public Use
  Company Number: US-OPTINOSE US, INC.-US-2018OPT000015

PATIENT
  Age: 35 Year
  Sex: Female
  Weight: 75.364 kg

DRUGS (7)
  1. XHANCE [Suspect]
     Active Substance: FLUTICASONE PROPIONATE
     Indication: Rhinitis allergic
     Route: 045
     Dates: start: 20180329, end: 2018
  2. XHANCE [Suspect]
     Active Substance: FLUTICASONE PROPIONATE
     Indication: Anosmia
     Route: 045
     Dates: start: 20180419, end: 20180425
  3. ASMANEX [Concomitant]
     Active Substance: MOMETASONE FUROATE
     Indication: Product used for unknown indication
     Dosage: ONCE A DAY
  4. VITAMIN C [Concomitant]
     Active Substance: ASCORBIC ACID
     Indication: Product used for unknown indication
     Route: 065
  5. CALTRATE [Concomitant]
     Active Substance: CALCIUM CARBONATE
     Indication: Product used for unknown indication
     Route: 065
  6. ZINC [Concomitant]
     Active Substance: ZINC
     Indication: Product used for unknown indication
     Route: 065
  7. VITAMIN D [Concomitant]
     Active Substance: VITAMIN D NOS
     Indication: Product used for unknown indication
     Route: 065

REACTIONS (4)
  - Nausea [Unknown]
  - Decreased appetite [Not Recovered/Not Resolved]
  - Off label use [Recovered/Resolved]
  - Epistaxis [Unknown]

NARRATIVE: CASE EVENT DATE: 20180401
